FAERS Safety Report 22173726 (Version 2)
Quarter: 2023Q2

REPORT INFORMATION
  Report Type: Report from Study
  Country: US (occurrence: None)
  Receive Date: 20230404
  Receipt Date: 20230512
  Transmission Date: 20230722
  Serious: No
  Sender: FDA-Public Use
  Company Number: 2023A077659

PATIENT
  Age: 911 Month
  Sex: Female
  Weight: 45.8 kg

DRUGS (1)
  1. TAGRISSO [Suspect]
     Active Substance: OSIMERTINIB
     Indication: Lung adenocarcinoma stage IV
     Dosage: UNKNOWN DOSE, DAILY
     Route: 048
     Dates: start: 2021

REACTIONS (4)
  - Tumour pain [Unknown]
  - Product use issue [Unknown]
  - Insurance issue [Unknown]
  - Product dispensing error [Unknown]

NARRATIVE: CASE EVENT DATE: 20220101
